FAERS Safety Report 11633840 (Version 1)
Quarter: 2015Q4

REPORT INFORMATION
  Report Type: Spontaneous
  Country: US (occurrence: US)
  Receive Date: 20151015
  Receipt Date: 20151015
  Transmission Date: 20160304
  Serious: No
  Sender: FDA-Public Use
  Company Number: PHEH2015US020067

PATIENT
  Sex: Male

DRUGS (4)
  1. COSENTYX [Suspect]
     Active Substance: SECUKINUMAB
     Indication: PSORIASIS
  2. COSENTYX [Suspect]
     Active Substance: SECUKINUMAB
     Indication: SEBORRHOEIC DERMATITIS
     Dosage: UNK
     Route: 065
  3. BRODALUMAB [Suspect]
     Active Substance: BRODALUMAB
     Indication: SEBORRHOEIC DERMATITIS
     Route: 065
  4. BRODALUMAB [Suspect]
     Active Substance: BRODALUMAB
     Indication: PSORIASIS

REACTIONS (3)
  - Psoriasis [Unknown]
  - Drug ineffective [Recovering/Resolving]
  - Off label use [Unknown]

NARRATIVE: CASE EVENT DATE: 20151007
